FAERS Safety Report 6946607-9 (Version None)
Quarter: 2010Q3

REPORT INFORMATION
  Report Type: 
  Country: None (occurrence: None)
  Receive Date: 20100827
  Receipt Date: 20090803
  Transmission Date: 20110219
  Serious: No
  Sender: FDA-Public Use
  Company Number: US-ABBOTT-09P-163-0589311-00

PATIENT
  Age: 60 Year
  Sex: Female
  Weight: 65.83 kg

DRUGS (7)
  1. NIASPAN [Suspect]
     Indication: HIGH DENSITY LIPOPROTEIN DECREASED
     Dates: start: 20090401, end: 20090501
  2. NIASPAN [Suspect]
     Dates: start: 20090601
  3. LIPITOR [Concomitant]
     Indication: PRODUCT USED FOR UNKNOWN INDICATION
     Dates: start: 20090201
  4. METOPROLOL TARTRATE [Concomitant]
     Indication: PRODUCT USED FOR UNKNOWN INDICATION
     Dates: start: 20090201
  5. PLAVIX [Concomitant]
     Indication: PRODUCT USED FOR UNKNOWN INDICATION
     Dates: start: 20090201
  6. FISH OIL [Concomitant]
     Indication: PRODUCT USED FOR UNKNOWN INDICATION
     Dates: start: 20090201
  7. ASPIRIN [Concomitant]
     Indication: PRODUCT USED FOR UNKNOWN INDICATION
     Dates: start: 20090201

REACTIONS (7)
  - FLUSHING [None]
  - GENERAL PHYSICAL CONDITION ABNORMAL [None]
  - GINGIVAL PAIN [None]
  - PHARYNGEAL OEDEMA [None]
  - RASH [None]
  - RASH PRURITIC [None]
  - SKIN BURNING SENSATION [None]
